FAERS Safety Report 10988700 (Version 2)
Quarter: 2015Q2

REPORT INFORMATION
  Report Type: Spontaneous
  Country: US (occurrence: US)
  Receive Date: 20150404
  Receipt Date: 20150525
  Transmission Date: 20150821
  Serious: No
  Sender: FDA-Public Use
  Company Number: US-JNJFOC-20141219810

PATIENT
  Age: 31 Year
  Sex: Male
  Weight: 77 kg

DRUGS (2)
  1. REMICADE [Suspect]
     Active Substance: INFLIXIMAB
     Indication: ENTERITIS
     Route: 042
     Dates: start: 20141217, end: 20141217
  2. REMICADE [Suspect]
     Active Substance: INFLIXIMAB
     Indication: ENTERITIS
     Route: 042
     Dates: start: 20141012

REACTIONS (6)
  - Malaise [Unknown]
  - Epistaxis [Unknown]
  - Vomiting [Unknown]
  - Chills [Unknown]
  - Infusion related reaction [Unknown]
  - Product use issue [Unknown]

NARRATIVE: CASE EVENT DATE: 20141012
